FAERS Safety Report 13241975 (Version 1)
Quarter: 2017Q1

REPORT INFORMATION
  Report Type: Spontaneous
  Country: GB (occurrence: GB)
  Receive Date: 20170217
  Receipt Date: 20170217
  Transmission Date: 20170428
  Serious: Yes (Other)
  Sender: FDA-Public Use
  Company Number: GB-TEVA-740859ACC

PATIENT
  Age: 76 Year
  Sex: Male

DRUGS (8)
  1. RANITIDINE. [Concomitant]
     Active Substance: RANITIDINE
     Dosage: 2 DOSAGE FORMS DAILY;
     Dates: start: 20160426
  2. ALGINATES [Concomitant]
     Dosage: FOUR TIMES A DAY
     Dates: start: 20160426
  3. NEFOPAM [Concomitant]
     Active Substance: NEFOPAM
     Dosage: 1 TO 2 TO BE TAKEN
     Dates: start: 20161103, end: 20161118
  4. TAMSULOSIN HYDROCHLORIDE. [Concomitant]
     Active Substance: TAMSULOSIN HYDROCHLORIDE
     Dosage: 1 DOSAGE FORMS DAILY;
     Dates: start: 20160426
  5. GABAPENTIN. [Suspect]
     Active Substance: GABAPENTIN
     Dates: start: 20161006
  6. FENBID [Concomitant]
     Active Substance: IBUPROFEN
     Dosage: 3 DOSAGE FORMS DAILY; APPLY
     Dates: start: 20160914
  7. TADALAFIL [Concomitant]
     Active Substance: TADALAFIL
     Dosage: USE AS DIRECTED
     Dates: start: 20160601
  8. COCODAMOL [Concomitant]
     Active Substance: ACETAMINOPHEN\CODEINE PHOSPHATE
     Dosage: TAKE 1 OR 2 UPTO 4 TIMES/DAY
     Dates: start: 20160426

REACTIONS (2)
  - Hallucination [Recovering/Resolving]
  - Nightmare [Recovering/Resolving]

NARRATIVE: CASE EVENT DATE: 20170130
